FAERS Safety Report 8646887 (Version 2)
Quarter: 2012Q4

REPORT INFORMATION
  Report Type: 
  Country: US (occurrence: US)
  Receive Date: 20120703
  Receipt Date: 20121115
  Transmission Date: 20130627
  Serious: Yes (Hospitalization, Other)
  Sender: FDA-Public Use
  Company Number: US-BAYER-2012-064359

PATIENT
  Age: 20 Year
  Sex: Female
  Weight: 68 kg

DRUGS (13)
  1. YASMIN [Suspect]
     Indication: ACNE
     Dosage: UNK
     Dates: start: 2009, end: 2010
  2. YASMIN [Suspect]
     Indication: PREMENSTRUAL SYNDROME
  3. YAZ [Suspect]
     Indication: PREMENSTRUAL SYNDROME
     Dosage: UNK
     Dates: start: 2009, end: 2010
  4. YAZ [Suspect]
     Indication: BLEEDING MENSTRUAL HEAVY
  5. YAZ [Suspect]
     Indication: CRAMPS MENSTRUAL
  6. OCELLA [Suspect]
     Indication: PREMENSTRUAL SYNDROME
     Dosage: UNK
     Dates: start: 2009, end: 2010
  7. TORADOL [Concomitant]
  8. DILAUDID [Concomitant]
  9. ZOFRAN [Concomitant]
  10. COMPAZINE [Concomitant]
  11. IBUPROFEN [Concomitant]
     Dosage: 800 mg, UNK
     Dates: start: 20100426
  12. PROPOXYPHENE NAPSYLATE [Concomitant]
     Dosage: UNK
     Dates: start: 20100426
  13. ZOLOFT [Concomitant]
     Dosage: 50 mg, UNK
     Dates: start: 20100706

REACTIONS (9)
  - Gallbladder disorder [None]
  - Cholecystitis acute [None]
  - Pulmonary embolism [None]
  - Deep vein thrombosis [None]
  - Off label use [None]
  - Anxiety [None]
  - Injury [None]
  - Pain [None]
  - Pain [None]
